FAERS Safety Report 13189486 (Version 2)
Quarter: 2017Q1

REPORT INFORMATION
  Report Type: Spontaneous
  Country: US (occurrence: US)
  Receive Date: 20170206
  Receipt Date: 20170222
  Transmission Date: 20170428
  Serious: Yes (Other)
  Sender: FDA-Public Use
  Company Number: US-PFIZER INC-2017046447

PATIENT
  Age: 69 Year
  Sex: Female
  Weight: 64 kg

DRUGS (8)
  1. FEMARA [Concomitant]
     Active Substance: LETROZOLE
     Indication: BREAST CANCER METASTATIC
     Dosage: 2.5 MG, UNK
  2. PROZAC [Concomitant]
     Active Substance: FLUOXETINE HYDROCHLORIDE
     Indication: ANXIETY
  3. IBRANCE [Suspect]
     Active Substance: PALBOCICLIB
     Indication: BREAST CANCER METASTATIC
     Dosage: 125 MG, CYCLIC 1X/DAY; 21 DAYS AND I STOPPED TAKING IT AND I WAS OFF OF IT FOR ABOUT 7 DAYS
     Route: 048
     Dates: start: 201611
  4. PROZAC [Concomitant]
     Active Substance: FLUOXETINE HYDROCHLORIDE
     Indication: DEPRESSION
     Dosage: 60 MG, UNK
  5. IBRANCE [Suspect]
     Active Substance: PALBOCICLIB
     Indication: LUNG DISORDER
     Dosage: 100 MG, CYCLIC(1 PO DAILY FOR 21 DAYS, THEN 7 DAYS OFF. REDUCED DOSE)
     Route: 048
  6. XARELTO [Concomitant]
     Active Substance: RIVAROXABAN
     Indication: THROMBOSIS
     Dosage: 20 MG, UNK
     Dates: start: 201611
  7. OMEPRAZOLE. [Concomitant]
     Active Substance: OMEPRAZOLE
     Indication: GASTROOESOPHAGEAL REFLUX DISEASE
     Dosage: 40 MG, UNK
  8. OLANZAPINE. [Concomitant]
     Active Substance: OLANZAPINE
     Indication: SLEEP DISORDER
     Dosage: 2.5 MG, UNK
     Dates: start: 20161104

REACTIONS (5)
  - Malaise [Recovering/Resolving]
  - Dehydration [Recovering/Resolving]
  - Immune system disorder [Unknown]
  - Stress [Recovering/Resolving]
  - Feeding disorder [Unknown]

NARRATIVE: CASE EVENT DATE: 201612
